FAERS Safety Report 14924288 (Version 1)
Quarter: 2018Q2

REPORT INFORMATION
  Report Type: Spontaneous
  Country: US (occurrence: US)
  Receive Date: 20180503
  Receipt Date: 20180503
  Transmission Date: 20180711
  Serious: Yes (Other)
  Sender: FDA-Public Use
  Company Number: None

PATIENT
  Age: 37 Year
  Sex: Female
  Weight: 65.25 kg

DRUGS (4)
  1. GENERIC FOR SYNTHYROID [Concomitant]
  2. PREVIFEM [Suspect]
     Active Substance: ETHINYL ESTRADIOL\NORGESTIMATE
     Indication: IRON DEFICIENCY ANAEMIA
     Dosage: ?          QUANTITY:1 TABLET(S);?
     Route: 048
     Dates: start: 20180301, end: 20180422
  3. FLONASE [Concomitant]
     Active Substance: FLUTICASONE PROPIONATE
  4. CENTRUM CHEWABLE VITAMINS [Concomitant]

REACTIONS (4)
  - Metrorrhagia [None]
  - Product substitution issue [None]
  - Drug ineffective [None]
  - Product quality issue [None]

NARRATIVE: CASE EVENT DATE: 20180301
